FAERS Safety Report 6259673-3 (Version None)
Quarter: 2009Q3

REPORT INFORMATION
  Report Type: 
  Country: None (occurrence: None)
  Receive Date: 20090701
  Receipt Date: 20090617
  Transmission Date: 20100115
  Serious: Yes (Other)
  Sender: FDA-Public Use
  Company Number: B0580883A

PATIENT
  Sex: 0

DRUGS (1)
  1. ALBUTEROL SULFATE [Suspect]

REACTIONS (1)
  - PARKINSONISM [None]
